FAERS Safety Report 9234842 (Version 2)
Quarter: 2013Q2

REPORT INFORMATION
  Report Type: Spontaneous
  Country: US (occurrence: US)
  Receive Date: 20130416
  Receipt Date: 20130503
  Transmission Date: 20140414
  Serious: No
  Sender: FDA-Public Use
  Company Number: US-PFIZER INC-2013114843

PATIENT
  Age: 70 Year
  Sex: Female

DRUGS (8)
  1. PREMPRO [Suspect]
     Indication: MENOPAUSAL SYMPTOMS
     Dosage: 0.45/1.5MG, 1X/DAY IN THE MORNING
     Dates: start: 1980
  2. PREMPRO [Suspect]
     Indication: PREMATURE MENOPAUSE
     Dosage: 0.625/2.5 MG 1X/DAY
     Route: 048
     Dates: start: 201204
  3. PREMPRO [Suspect]
     Indication: AFFECTIVE DISORDER
  4. PREMPRO [Suspect]
     Indication: HYPERHIDROSIS
  5. LISINOPRIL [Concomitant]
     Dosage: UNK
  6. LEXAPRO [Concomitant]
     Indication: DEPRESSED MOOD
     Dosage: 10 MG, 1X/DAY
  7. ATENOLOL [Concomitant]
     Indication: PALPITATIONS
     Dosage: 25 MG, 1X/DAY
  8. SYNTHROID [Concomitant]
     Indication: THYROID DISORDER
     Dosage: 0.1 MG, 1X/DAY

REACTIONS (1)
  - Drug ineffective [Unknown]
